FAERS Safety Report 8796044 (Version 2)
Quarter: 2014Q3

REPORT INFORMATION
  Report Type: Spontaneous
  Country: US (occurrence: US)
  Receive Date: 20120919
  Receipt Date: 20140808
  Transmission Date: 20150326
  Serious: Yes (Hospitalization, Other)
  Sender: FDA-Public Use
  Company Number: US-CELGENEUS-163-21880-12062401

PATIENT

DRUGS (3)
  1. REVLIMID [Suspect]
     Active Substance: LENALIDOMIDE
     Indication: PLASMA CELL MYELOMA
     Dosage: 25 MILLIGRAM
     Route: 048
  2. CARFILZOMIB [Suspect]
     Active Substance: CARFILZOMIB
     Indication: PLASMA CELL MYELOMA
     Dosage: 20, 27, OR 36MG/M2
     Route: 065
  3. DEXAMETHASONE. [Suspect]
     Active Substance: DEXAMETHASONE
     Indication: PLASMA CELL MYELOMA
     Dosage: 40/20MG
     Route: 065

REACTIONS (17)
  - Muscle spasms [Unknown]
  - Hypophosphataemia [Unknown]
  - Oedema [Unknown]
  - Deep vein thrombosis [Unknown]
  - Mood altered [Unknown]
  - Plasma cell myeloma [Unknown]
  - Phlebitis [Unknown]
  - Diarrhoea [Unknown]
  - Leukopenia [Unknown]
  - Rash [Unknown]
  - Nausea [Unknown]
  - Constipation [Unknown]
  - Thrombocytopenia [Unknown]
  - Fatigue [Unknown]
  - Liver function test abnormal [Unknown]
  - Lymphopenia [Unknown]
  - Neuropathy peripheral [Unknown]
